FAERS Safety Report 18137773 (Version 2)
Quarter: 2020Q4

REPORT INFORMATION
  Report Type: Report from Study
  Country: JP (occurrence: JP)
  Receive Date: 20200811
  Receipt Date: 20201212
  Transmission Date: 20210113
  Serious: Yes (Hospitalization, Other)
  Sender: FDA-Public Use
  Company Number: JP-CELLTRION INC.-2020JP025010

PATIENT

DRUGS (5)
  1. CT-P13 [Suspect]
     Active Substance: INFLIXIMAB-DYYB
     Dosage: 330 MG (WEIGHT: 66 KG)
     Route: 041
     Dates: start: 20190921, end: 20190921
  2. CT-P13 [Suspect]
     Active Substance: INFLIXIMAB-DYYB
     Dosage: 300 MG (WEIGHT: 60 KG)
     Route: 041
     Dates: start: 20201004, end: 20201004
  3. CT-P13 [Suspect]
     Active Substance: INFLIXIMAB-DYYB
     Indication: CROHN^S DISEASE
     Dosage: 335 MG (WEIGHT: 67 KG)
     Route: 041
     Dates: start: 20181028, end: 20181028
  4. AZATHIOPRINE. [Concomitant]
     Active Substance: AZATHIOPRINE
     Dosage: 50 MILLIGRAM/DAY (END DATE: 13-DEC-2019)
     Route: 048
  5. MESALAZINE [Concomitant]
     Active Substance: MESALAMINE
     Dosage: 3000 MILLIGRAM/DAY
     Route: 048

REACTIONS (7)
  - Product use issue [Unknown]
  - Seasonal allergy [Unknown]
  - Off label use [Unknown]
  - Small intestinal stenosis [Recovered/Resolved]
  - Peritonitis [Recovered/Resolved]
  - Subcutaneous abscess [Recovered/Resolved]
  - Nasopharyngitis [Recovered/Resolved]

NARRATIVE: CASE EVENT DATE: 20190226
